FAERS Safety Report 4309383-4 (Version None)
Quarter: 2004Q1

REPORT INFORMATION
  Report Type: 
  Country: None (occurrence: None)
  Receive Date: 20040302
  Receipt Date: 20040220
  Transmission Date: 20041129
  Serious: Yes (Disabling)
  Sender: FDA-Public Use
  Company Number: US-ROCHE-359687

PATIENT
  Age: 27 Year
  Sex: Male
  Weight: 81.6 kg

DRUGS (1)
  1. ACCUTANE [Suspect]
     Indication: ACNE
     Route: 048
     Dates: start: 20020115, end: 20020715

REACTIONS (9)
  - AGGRESSION [None]
  - ANGER [None]
  - ANHEDONIA [None]
  - CHANGE OF BOWEL HABIT [None]
  - DEPRESSION [None]
  - ILL-DEFINED DISORDER [None]
  - SUICIDAL IDEATION [None]
  - SUICIDE ATTEMPT [None]
  - VOMITING [None]
